FAERS Safety Report 7134729-1 (Version None)
Quarter: 2010Q4

REPORT INFORMATION
  Report Type: 
  Country: None (occurrence: None)
  Receive Date: 20101203
  Receipt Date: 20101123
  Transmission Date: 20110411
  Serious: Yes (Hospitalization)
  Sender: FDA-Public Use
  Company Number: ES-ROCHE-731764

PATIENT
  Sex: Male
  Weight: 70 kg

DRUGS (7)
  1. BEVACIZUMAB [Suspect]
     Dosage: LAST DOSE PRIOR TO SAE: 23 SEPTEMBER 2010, TEMPORARILY INTERRUPTED, FORM: INFUSION
     Route: 042
     Dates: start: 20100113, end: 20101005
  2. FLUOROURACIL [Suspect]
     Dosage: FORM: BOLUS, LAST DOSE PRIOR TO SAE: 21 SEPTEMBER 2010, TEMPORARILY INTERRUPTED
     Route: 040
     Dates: start: 20100113, end: 20101005
  3. FLUOROURACIL [Suspect]
     Dosage: DOSAGE FORM: INFUSION.
     Route: 040
     Dates: start: 20100113, end: 20100921
  4. LEUCOVORIN [Suspect]
     Dosage: TEMPORARILY INTERRUPTED. LAST DOSE PRIOR TO SAE: 21 SEPTEMBER 2010, FORM: INFUSION
     Route: 042
     Dates: start: 20090113, end: 20101005
  5. IRINOTECAN HCL [Suspect]
     Dosage: LAST DOSE PRIOR TO SAE: 21 SEPTEMBER 2010, TEMPORARILY INTERRUPTED, FORM: INFUSION
     Route: 042
     Dates: start: 20100113, end: 20101005
  6. GABAPENTINA [Concomitant]
     Dates: start: 20100209, end: 20101005
  7. POLARAMINE [Concomitant]
     Dates: start: 20100906, end: 20100906

REACTIONS (3)
  - COLORECTAL CANCER METASTATIC [None]
  - GASTROINTESTINAL OBSTRUCTION [None]
  - MALIGNANT NEOPLASM PROGRESSION [None]
